FAERS Safety Report 6210048-2 (Version None)
Quarter: 2009Q2

REPORT INFORMATION
  Report Type: 
  Country: None (occurrence: None)
  Receive Date: 20090601
  Receipt Date: 20090521
  Transmission Date: 20091009
  Serious: Yes (Death, Other)
  Sender: FDA-Public Use
  Company Number: US-PFIZER INC-2005160747

PATIENT
  Sex: Female
  Weight: 102 kg

DRUGS (8)
  1. PROVERA [Suspect]
     Indication: HORMONE REPLACEMENT THERAPY
     Dosage: 5 MG, UNK
     Route: 048
     Dates: start: 19940501, end: 20010901
  2. MEDROXYPROGESTERONE ACETATE [Suspect]
     Indication: HORMONE REPLACEMENT THERAPY
     Route: 065
     Dates: start: 19940101, end: 20010101
  3. PREMARIN [Suspect]
     Indication: HORMONE REPLACEMENT THERAPY
     Dosage: 0.625 MG, UNK
     Route: 065
     Dates: start: 19940501, end: 20010901
  4. ZOLOFT [Concomitant]
     Indication: DEPRESSION
     Dosage: UNK
     Dates: start: 19940401, end: 20050706
  5. PREVACID [Concomitant]
     Indication: DYSPEPSIA
     Dosage: UNK
     Dates: start: 19960101, end: 20050701
  6. ALLEGRA [Concomitant]
     Indication: SEASONAL ALLERGY
     Dosage: UNK
     Dates: start: 19980701, end: 20050701
  7. FAMVIR [Concomitant]
     Indication: HERPES ZOSTER
     Dosage: UNK
     Dates: start: 19991001, end: 20050101
  8. VERAPAMIL [Concomitant]
     Indication: HEART RATE IRREGULAR
     Dosage: UNK
     Dates: start: 20000915, end: 20050706

REACTIONS (1)
  - BREAST CANCER FEMALE [None]
